FAERS Safety Report 10185412 (Version 2)
Quarter: 2014Q2

REPORT INFORMATION
  Report Type: Report from Study
  Country: BR (occurrence: BR)
  Receive Date: 20140521
  Receipt Date: 20140521
  Transmission Date: 20141212
  Serious: Yes (Other)
  Sender: FDA-Public Use
  Company Number: PHHO2010BR06525

PATIENT
  Age: 72 Year
  Sex: Female
  Weight: 89.5 kg

DRUGS (2)
  1. SOM230 [Suspect]
     Indication: ACROMEGALY
     Dosage: CORE PHASE
     Route: 030
     Dates: start: 20090428, end: 20100330
  2. SOM230 [Suspect]
     Dosage: EXTENSION PHASE
     Route: 030
     Dates: start: 20100330

REACTIONS (1)
  - Oedema peripheral [Recovering/Resolving]
